FAERS Safety Report 10368789 (Version 2)
Quarter: 2014Q3

REPORT INFORMATION
  Report Type: Report from Study
  Country: AR (occurrence: AR)
  Receive Date: 20140807
  Receipt Date: 20140808
  Transmission Date: 20150326
  Serious: Yes (Death, Other)
  Sender: FDA-Public Use
  Company Number: PHHY2014AR097013

PATIENT
  Age: 77 Year
  Sex: Female

DRUGS (1)
  1. DIOVAN [Suspect]
     Active Substance: VALSARTAN
     Indication: HYPERTENSION
     Dosage: 1 DF, DAILY
     Route: 048

REACTIONS (5)
  - General physical health deterioration [Unknown]
  - Parkinson^s disease [Unknown]
  - Depression [Unknown]
  - Respiratory arrest [Fatal]
  - Hypokinesia [Unknown]

NARRATIVE: CASE EVENT DATE: 20140716
